FAERS Safety Report 23261693 (Version 3)
Quarter: 2024Q2

REPORT INFORMATION
  Report Type: Spontaneous
  Country: BE (occurrence: BE)
  Receive Date: 20231205
  Receipt Date: 20240426
  Transmission Date: 20240716
  Serious: Yes (Hospitalization, Other)
  Sender: FDA-Public Use
  Company Number: BE-MYLANLABS-2023M1121759

PATIENT
  Age: 43 Year
  Sex: Male
  Weight: 70 kg

DRUGS (26)
  1. MEROPENEM [Suspect]
     Active Substance: MEROPENEM
     Indication: Antibiotic therapy
     Dosage: UNK
     Route: 065
  2. VORICONAZOLE [Suspect]
     Active Substance: VORICONAZOLE
     Indication: Bronchopulmonary aspergillosis
     Dosage: UNK
     Route: 065
  3. AMBISOME [Suspect]
     Active Substance: AMPHOTERICIN B
     Indication: Aspergillus infection
     Dosage: 3 MILLIGRAM/KILOGRAM, ONCE A DAY
     Route: 042
     Dates: start: 20221107, end: 20221110
  4. AMPHOTERICIN B [Suspect]
     Active Substance: AMPHOTERICIN B
     Indication: Antibiotic therapy
     Dosage: UNK
     Route: 065
  5. TACROLIMUS [Suspect]
     Active Substance: TACROLIMUS
     Indication: Prophylaxis against transplant rejection
     Dosage: 4 MILLIGRAM, ONCE A DAY
     Route: 048
     Dates: start: 202202, end: 20221125
  6. TACROLIMUS [Suspect]
     Active Substance: TACROLIMUS
     Indication: Immunosuppressant drug therapy
  7. CASPOFUNGIN [Interacting]
     Active Substance: CASPOFUNGIN
     Indication: Antibiotic therapy
     Dosage: 50 MILLIGRAM, ONCE A DAY
     Route: 042
     Dates: start: 20220914, end: 20220926
  8. CASPOFUNGIN [Interacting]
     Active Substance: CASPOFUNGIN
     Indication: Bronchopulmonary aspergillosis
     Dosage: 50 MILLIGRAM, ONCE A DAY
     Route: 042
     Dates: start: 20221205, end: 20230331
  9. COTRIMOXAZOLE [Suspect]
     Active Substance: SULFAMETHOXAZOLE\TRIMETHOPRIM
     Indication: Nocardiosis
     Dosage: 1920 MILLIGRAM, ONCE A DAY
     Route: 048
     Dates: start: 20220926, end: 20221115
  10. COTRIMOXAZOLE [Suspect]
     Active Substance: SULFAMETHOXAZOLE\TRIMETHOPRIM
     Indication: Renal impairment
     Dosage: 2 DOSAGE FORM, 3 TIMES A DAY
     Route: 048
     Dates: start: 20230105, end: 20230106
  11. COTRIMOXAZOLE [Suspect]
     Active Substance: SULFAMETHOXAZOLE\TRIMETHOPRIM
     Dosage: 2 DOSAGE FORM, FOUR TIMES/DAY
     Route: 048
     Dates: start: 20221230, end: 20230104
  12. COTRIMOXAZOLE [Suspect]
     Active Substance: SULFAMETHOXAZOLE\TRIMETHOPRIM
     Dosage: UNK
     Route: 048
     Dates: start: 20230106, end: 20230112
  13. TACROLIMUS [Interacting]
     Active Substance: TACROLIMUS
     Indication: Immunosuppressant drug therapy
     Dosage: UNK
     Route: 065
  14. SIROLIMUS [Interacting]
     Active Substance: SIROLIMUS
     Indication: Prophylaxis against transplant rejection
     Dosage: UNK
     Route: 065
     Dates: start: 20221125
  15. POSACONAZOLE [Interacting]
     Active Substance: POSACONAZOLE
     Indication: Fungal infection
     Dosage: 300 MILLIGRAM, ONCE A DAY
     Route: 048
     Dates: start: 20221007, end: 20221205
  16. POSACONAZOLE [Interacting]
     Active Substance: POSACONAZOLE
     Indication: Cerebral aspergillosis
  17. POSACONAZOLE [Interacting]
     Active Substance: POSACONAZOLE
     Indication: Aspergillus infection
  18. CEFTRIAXONE [Concomitant]
     Active Substance: CEFTRIAXONE\CEFTRIAXONE SODIUM
     Indication: Nocardiosis
     Dosage: 2 GRAM, ONCE A DAY (2 GRAM, QD ONCE DAILY (26/JAN - 9/FEB: CEFTRIAXONE 2 G 2/DAY IV))
     Route: 042
  19. CEFTRIAXONE [Concomitant]
     Active Substance: CEFTRIAXONE\CEFTRIAXONE SODIUM
     Dosage: 2 GRAM, ONCE A DAY
     Route: 042
     Dates: start: 20221115
  20. MYCOPHENOLIC ACID [Concomitant]
     Active Substance: MYCOPHENOLIC ACID
     Indication: Prophylaxis against transplant rejection
     Dosage: 2 GRAM, ONCE A DAY
     Route: 065
     Dates: start: 20220213
  21. MYCOPHENOLIC ACID [Concomitant]
     Active Substance: MYCOPHENOLIC ACID
     Indication: Immunosuppressant drug therapy
  22. MEROPENEM [Concomitant]
     Active Substance: MEROPENEM
     Indication: Central nervous system infection
     Dosage: 3 GRAM, ONCE A DAY
     Route: 042
     Dates: start: 20220926
  23. MEROPENEM [Concomitant]
     Active Substance: MEROPENEM
     Indication: Immunosuppressant drug therapy
  24. MEROPENEM [Concomitant]
     Active Substance: MEROPENEM
     Indication: Central nervous system infection
     Dosage: 3 G, ONCE DAILY (1 GRAM, TID)
     Route: 042
     Dates: start: 20220923, end: 20231110
  25. VFEND [Concomitant]
     Active Substance: VORICONAZOLE
     Indication: Aspergillus infection
     Dosage: 600 MILLIGRAM, ONCE A DAY
     Route: 042
     Dates: start: 20220902, end: 20231007
  26. VFEND [Concomitant]
     Active Substance: VORICONAZOLE
     Indication: Bronchopulmonary aspergillosis

REACTIONS (15)
  - Microangiopathic haemolytic anaemia [Recovered/Resolved]
  - Acute kidney injury [Recovered/Resolved]
  - Pancytopenia [Recovered/Resolved]
  - Pulmonary nocardiosis [Recovered/Resolved]
  - Brain abscess [Recovered/Resolved]
  - Candida infection [Recovered/Resolved]
  - Bronchopulmonary aspergillosis [Recovered/Resolved]
  - Fungal infection [Recovered/Resolved]
  - Drug ineffective [Unknown]
  - Respiratory distress [Unknown]
  - Condition aggravated [Unknown]
  - General physical health deterioration [Unknown]
  - Pyrexia [Unknown]
  - Off label use [Unknown]
  - Labelled drug-drug interaction issue [Unknown]

NARRATIVE: CASE EVENT DATE: 20221007
